FAERS Safety Report 9656394 (Version 2)
Quarter: 2013Q4

REPORT INFORMATION
  Report Type: Spontaneous
  Country: GB (occurrence: GB)
  Receive Date: 20131030
  Receipt Date: 20131204
  Transmission Date: 20140711
  Serious: Yes (Other)
  Sender: FDA-Public Use
  Company Number: GB-NOVOPROD-390641

PATIENT
  Age: 72 Year
  Sex: Male
  Weight: 71.7 kg

DRUGS (2)
  1. NOVOMIX 30 FLEXPEN [Suspect]
     Indication: TYPE 2 DIABETES MELLITUS
     Dosage: 6 UNITS IN THE MORNING, 2 UNITS AT LUNCH, AND 4 OR 5 UNITS IN  THE EVENING
     Route: 065
     Dates: start: 200710
  2. PREDNISOLONE [Concomitant]
     Indication: PRODUCT USED FOR UNKNOWN INDICATION

REACTIONS (2)
  - Cerebrovascular accident [Recovered/Resolved]
  - Blood glucose fluctuation [Not Recovered/Not Resolved]
